FAERS Safety Report 24996410 (Version 3)
Quarter: 2025Q2

REPORT INFORMATION
  Report Type: Spontaneous
  Country: CA (occurrence: CA)
  Receive Date: 20250221
  Receipt Date: 20250401
  Transmission Date: 20250716
  Serious: Yes (Death, Hospitalization)
  Sender: MYLAN
  Company Number: CA-MYLANLABS-2025M1015544

PATIENT
  Age: 68 Year
  Sex: Female

DRUGS (13)
  1. REVATIO [Suspect]
     Active Substance: SILDENAFIL CITRATE
     Indication: Pulmonary arterial hypertension
     Dosage: 20 MILLIGRAM, TID (3 TIMES DAY)
     Dates: start: 20250214
  2. REVATIO [Suspect]
     Active Substance: SILDENAFIL CITRATE
     Dosage: 20 MILLIGRAM, TID (3 TIMES DAY)
     Dates: start: 20250219
  3. POTASSIUM [Concomitant]
     Active Substance: POTASSIUM
     Dosage: UNK, QD
  4. SPIRONOLACTONE [Concomitant]
     Active Substance: SPIRONOLACTONE
     Dosage: 25 MILLIGRAM, QD
  5. BREZTRI [Concomitant]
     Active Substance: BUDESONIDE\FORMOTEROL\GLYCOPYRROLATE
  6. ECHINACEA [Concomitant]
     Active Substance: ECHINACEA, UNSPECIFIED
     Dosage: UNK, QD
  7. ZINC [Concomitant]
     Active Substance: ZINC
     Dosage: UNK, QD
  8. VITAMIN D [Concomitant]
     Active Substance: VITAMIN D NOS
     Dosage: UNK, QD (DAILY)
  9. B 100 [Concomitant]
     Dosage: UNK, QD (DAILY)
  10. PROBIOTICS NOS [Concomitant]
     Active Substance: PROBIOTICS NOS
     Dosage: UNK, QD (DAILY)
  11. OXYGEN [Concomitant]
     Active Substance: OXYGEN
  12. VITAMIN C [Concomitant]
     Active Substance: ASCORBIC ACID
     Dosage: UNK, QD (DAILY)
  13. OPSUMIT [Concomitant]
     Active Substance: MACITENTAN
     Dosage: 10 MILLIGRAM, QD

REACTIONS (4)
  - Death [Fatal]
  - Dry mouth [Unknown]
  - Headache [Unknown]
  - Adverse event [Not Recovered/Not Resolved]

NARRATIVE: CASE EVENT DATE: 20250214
